FAERS Safety Report 13397331 (Version 2)
Quarter: 2017Q2

REPORT INFORMATION
  Report Type: Spontaneous
  Country: JP (occurrence: JP)
  Receive Date: 20170403
  Receipt Date: 20170504
  Transmission Date: 20170830
  Serious: Yes (Other)
  Sender: FDA-Public Use
  Company Number: JP-SA-2017SA052846

PATIENT
  Age: 74 Year
  Sex: Male

DRUGS (3)
  1. JEVTANA [Suspect]
     Active Substance: CABAZITAXEL
     Indication: HORMONE-REFRACTORY PROSTATE CANCER
     Dosage: 36 MG/BODY/CYCLE
     Route: 042
     Dates: start: 20170228, end: 20170228
  2. PREDNISONE. [Concomitant]
     Active Substance: PREDNISONE
     Route: 065
     Dates: start: 20170228
  3. G-LASTA [Concomitant]
     Active Substance: PEGFILGRASTIM
     Dosage: 3.6 MG/DOSE
     Route: 065
     Dates: start: 20170301

REACTIONS (1)
  - Embolism [Recovering/Resolving]

NARRATIVE: CASE EVENT DATE: 20170327
